FAERS Safety Report 5619912-6 (Version None)
Quarter: 2008Q1

REPORT INFORMATION
  Report Type: 
  Country: None (occurrence: None)
  Receive Date: 20080208
  Receipt Date: 20070705
  Transmission Date: 20080703
  Serious: No
  Sender: FDA-Public Use
  Company Number: US-ABBOTT-07P-163-0374397-00

PATIENT
  Age: 62 Year
  Sex: Male

DRUGS (2)
  1. VICODIN [Suspect]
     Indication: HERPES ZOSTER
     Route: 048
     Dates: start: 20070301, end: 20070301
  2. VICODIN [Suspect]
     Indication: PAIN

REACTIONS (2)
  - DRUG DEPENDENCE [None]
  - PRURITUS [None]
